FAERS Safety Report 24571946 (Version 2)
Quarter: 2024Q4

REPORT INFORMATION
  Report Type: Spontaneous
  Country: CN (occurrence: CN)
  Receive Date: 20241101
  Receipt Date: 20241111
  Transmission Date: 20250114
  Serious: Yes (Other)
  Sender: IPSEN BIOPHARMACEUTICALS, INC.
  Company Number: CN-NMPA-3201271886349202400242

PATIENT
  Age: 51 Year
  Sex: Female
  Weight: 49 kg

DRUGS (3)
  1. IRINOTECAN HYDROCHLORIDE [Suspect]
     Active Substance: IRINOTECAN HYDROCHLORIDE
     Indication: Pancreatic carcinoma
     Dosage: 86 MG, QD
     Route: 042
     Dates: start: 20240925, end: 20240925
  2. SURUFATINIB [Suspect]
     Active Substance: SURUFATINIB
     Indication: Pancreatic carcinoma
     Dosage: 150 MG, QD
     Route: 048
     Dates: start: 20240925, end: 20241020
  3. TISLELIZUMAB [Concomitant]
     Active Substance: TISLELIZUMAB
     Indication: Pancreatic carcinoma
     Dosage: 200 MG, QD
     Route: 042
     Dates: start: 20240925, end: 20240925

REACTIONS (1)
  - Myelosuppression [Recovering/Resolving]

NARRATIVE: CASE EVENT DATE: 20241022
